FAERS Safety Report 11225262 (Version 1)
Quarter: 2015Q2

REPORT INFORMATION
  Report Type: Spontaneous
  Country: DE (occurrence: DE)
  Receive Date: 20150629
  Receipt Date: 20150629
  Transmission Date: 20150821
  Serious: Yes (Other)
  Sender: FDA-Public Use
  Company Number: DE-PFIZER INC-2015210394

PATIENT
  Age: 27 Year
  Sex: Female
  Weight: 53 kg

DRUGS (4)
  1. CYTOTEC [Concomitant]
     Active Substance: MISOPROSTOL
     Indication: LABOUR INDUCTION
     Dosage: 0.2 MG, 1X/DAY, 36.6 GESTATIONAL WEEK
     Dates: start: 20150203, end: 20150203
  2. GYNVITAL GRAVIDA [Concomitant]
     Active Substance: HERBALS
     Indication: PROPHYLAXIS OF NEURAL TUBE DEFECT
     Dosage: 0.4 MG, 1X/DAY, 3.4 - 37 GESTATIONAL WEEK
     Route: 048
     Dates: start: 20140615, end: 20150204
  3. VENLAFAXINE HCL [Suspect]
     Active Substance: VENLAFAXINE HYDROCHLORIDE
     Indication: DEPRESSION
     Dosage: 37.5 MG, DAILY, INITIAL DOSE IN GESTATIONAL WEEK 12.2
     Route: 048
     Dates: start: 20140815
  4. VENLAFAXINE HCL [Suspect]
     Active Substance: VENLAFAXINE HYDROCHLORIDE
     Dosage: 75 MG, DAILY, GESTATIONAL WEEK 16 - 37
     Route: 048
     Dates: end: 20150204

REACTIONS (2)
  - Foetal death [Recovered/Resolved]
  - Placental insufficiency [Recovered/Resolved]
